FAERS Safety Report 9275208 (Version 1)
Quarter: 2013Q2

REPORT INFORMATION
  Report Type: Spontaneous
  Country: US (occurrence: None)
  Receive Date: 20130430
  Receipt Date: 20130430
  Transmission Date: 20140414
  Serious: Yes (Other)
  Sender: FDA-Public Use
  Company Number: CLCY20130081

PATIENT
  Age: 53 Year
  Sex: Female

DRUGS (3)
  1. COLCRYS 0.6 MG [Suspect]
     Indication: GOUT
     Dosage: 0.6 MG, 2 TABS NOW THEN 1 TAB IN 1 HOUR, UNKNOWN
     Dates: start: 20130402, end: 20130402
  2. UNKNOWN MEDS [Concomitant]
  3. Z PAK (AZITHRIMYCIN) [Concomitant]

REACTIONS (3)
  - Rash [None]
  - Urticaria [None]
  - Throat tightness [None]
